FAERS Safety Report 17314850 (Version 1)
Quarter: 2020Q1

REPORT INFORMATION
  Report Type: Spontaneous
  Country: US (occurrence: US)
  Receive Date: 20200123
  Receipt Date: 20200123
  Transmission Date: 20200409
  Serious: Yes (Disabling)
  Sender: FDA-Public Use
  Company Number: None

PATIENT
  Age: 51 Year
  Sex: Female

DRUGS (4)
  1. ALPRAZOLAM. [Suspect]
     Active Substance: ALPRAZOLAM
     Indication: INSOMNIA
     Dates: start: 20110801, end: 20190817
  2. TEMAZEPAM. [Suspect]
     Active Substance: TEMAZEPAM
  3. LORAZEPAM. [Suspect]
     Active Substance: LORAZEPAM
  4. VALIUM [Suspect]
     Active Substance: DIAZEPAM

REACTIONS (7)
  - Feeling jittery [None]
  - Amnesia [None]
  - Movement disorder [None]
  - Speech disorder [None]
  - Panic attack [None]
  - Anxiety [None]
  - Cognitive disorder [None]

NARRATIVE: CASE EVENT DATE: 20160101
